FAERS Safety Report 5926211-1 (Version None)
Quarter: 2008Q4

REPORT INFORMATION
  Report Type: 
  Country: None (occurrence: None)
  Receive Date: 20081017
  Receipt Date: 20081015
  Transmission Date: 20090506
  Serious: Yes (Other)
  Sender: FDA-Public Use
  Company Number: 1000000386

PATIENT
  Age: 40 Year
  Sex: Female
  Weight: 74 kg

DRUGS (6)
  1. LEXAPRO [Suspect]
     Indication: DEPRESSION
     Dosage: 10 MG (10 MG, 1 IN 1 D), ORAL; ORAL
     Route: 048
     Dates: start: 20030201, end: 20080425
  2. LEXAPRO [Suspect]
     Indication: DEPRESSION
     Dosage: 10 MG (10 MG, 1 IN 1 D), ORAL; ORAL
     Route: 048
     Dates: start: 20080426, end: 20080509
  3. STUDY DRUG NOS [Suspect]
     Indication: CONGENITAL CYSTIC KIDNEY DISEASE
     Dosage: 45/15 MG DAILY, 60/30 MG DAILY
     Dates: start: 20070709, end: 20080312
  4. STUDY DRUG NOS [Suspect]
     Indication: CONGENITAL CYSTIC KIDNEY DISEASE
     Dosage: 45/15 MG DAILY, 60/30 MG DAILY
     Dates: start: 20080709, end: 20080716
  5. STUDY DRUG NOS [Suspect]
     Indication: CONGENITAL CYSTIC KIDNEY DISEASE
     Dosage: 45/15 MG DAILY, 60/30 MG DAILY
     Dates: start: 20080717
  6. LISINOPRIL [Concomitant]

REACTIONS (7)
  - ALANINE AMINOTRANSFERASE INCREASED [None]
  - ANOREXIA [None]
  - ASPARTATE AMINOTRANSFERASE INCREASED [None]
  - GALLBLADDER POLYP [None]
  - HEPATIC CYST [None]
  - LIVER INJURY [None]
  - WEIGHT DECREASED [None]
